FAERS Safety Report 18856130 (Version 1)
Quarter: 2021Q1

REPORT INFORMATION
  Report Type: Other
  Country: US (occurrence: US)
  Receive Date: 20210206
  Receipt Date: 20210206
  Transmission Date: 20210420
  Serious: Yes (Other)
  Sender: FDA-Public Use
  Company Number: US-ROCHE-2759208

PATIENT
  Sex: Male

DRUGS (2)
  1. XELODA [Suspect]
     Active Substance: CAPECITABINE
     Indication: METASTASES TO CENTRAL NERVOUS SYSTEM
  2. XELODA [Suspect]
     Active Substance: CAPECITABINE
     Indication: COLON CANCER
     Dosage: TAKE 3 TABLET(S) BY MOUTH TWICE A DAY WITH MEALS FOR 14 DAYS ON, THEN 7 DAYS OFF
     Route: 048

REACTIONS (2)
  - Metastases to spine [Unknown]
  - Metastases to lung [Unknown]
